FAERS Safety Report 8974689 (Version 2)
Quarter: 2013Q1

REPORT INFORMATION
  Report Type: Spontaneous
  Country: FR (occurrence: FR)
  Receive Date: 20121220
  Receipt Date: 20130114
  Transmission Date: 20140127
  Serious: Yes (Hospitalization)
  Sender: FDA-Public Use
  Company Number: FR-ASTRAZENECA-2012SE92769

PATIENT
  Age: 662 Month
  Sex: Male

DRUGS (8)
  1. VOGALEN [Concomitant]
     Dates: start: 201206
  2. INEXIUM [Suspect]
     Route: 048
     Dates: start: 2012, end: 20121106
  3. KEPPRA [Suspect]
     Route: 048
     Dates: start: 201204
  4. PARACETAMOL [Suspect]
     Route: 048
  5. DIFFU-K [Suspect]
     Route: 048
     Dates: start: 2012
  6. TEMODAL [Suspect]
     Dosage: 130 ML DAILY ACCORDING COURSE OF TREATMENT
     Route: 048
     Dates: start: 20120606, end: 20121014
  7. MEDROL [Suspect]
     Route: 048
     Dates: start: 2012
  8. HALDOL [Concomitant]
     Dates: start: 201206

REACTIONS (2)
  - Mixed liver injury [Not Recovered/Not Resolved]
  - Hepatitis acute [Not Recovered/Not Resolved]
